FAERS Safety Report 5485726-3 (Version None)
Quarter: 2007Q4

REPORT INFORMATION
  Report Type: 
  Country: None (occurrence: None)
  Receive Date: 20071015
  Receipt Date: 20071004
  Transmission Date: 20080405
  Serious: Yes (Other)
  Sender: FDA-Public Use
  Company Number: FR-ROCHE-504029

PATIENT
  Sex: Female
  Weight: 74 kg

DRUGS (2)
  1. XENICAL [Suspect]
     Indication: DRUG USE FOR UNKNOWN INDICATION
     Route: 048
  2. ANTIDEPRESSANT NOS [Concomitant]
     Route: 065

REACTIONS (5)
  - ABDOMINAL PAIN [None]
  - CHROMATURIA [None]
  - FAECES PALE [None]
  - LIVER DISORDER [None]
  - PARAESTHESIA [None]
